FAERS Safety Report 5965292-6 (Version None)
Quarter: 2008Q4

REPORT INFORMATION
  Report Type: 
  Country: None (occurrence: None)
  Receive Date: 20081125
  Receipt Date: 20081117
  Transmission Date: 20090506
  Serious: Yes (Hospitalization)
  Sender: FDA-Public Use
  Company Number: GB-AVENTIS-200820537GDDC

PATIENT
  Age: 56 Year
  Sex: Male
  Weight: 124.4 kg

DRUGS (7)
  1. LANTUS [Suspect]
     Route: 058
     Dates: start: 20080929
  2. PREGABALIN [Concomitant]
  3. PARACETAMOL [Concomitant]
  4. RAMIPRIL [Concomitant]
  5. DILTIAZEM [Concomitant]
  6. CLOPIDOGREL [Concomitant]
  7. DIHYDROCODEINE BITARTRATE INJ [Concomitant]

REACTIONS (2)
  - CHEST PAIN [None]
  - FALL [None]
